FAERS Safety Report 22228801 (Version 1)
Quarter: 2023Q2

REPORT INFORMATION
  Report Type: Spontaneous
  Country: US (occurrence: US)
  Receive Date: 20230419
  Receipt Date: 20230419
  Transmission Date: 20230722
  Serious: Yes (Hospitalization)
  Sender: FDA-Public Use
  Company Number: US-MYLANLABS-2023M1041513

PATIENT
  Age: 77 Year
  Sex: Female

DRUGS (28)
  1. VALACYCLOVIR HYDROCHLORIDE [Suspect]
     Active Substance: VALACYCLOVIR HYDROCHLORIDE
     Indication: Neuralgia
     Dosage: UNK
     Route: 065
  2. VALACYCLOVIR HYDROCHLORIDE [Suspect]
     Active Substance: VALACYCLOVIR HYDROCHLORIDE
     Indication: Post herpetic neuralgia
  3. LIDOCAINE [Suspect]
     Active Substance: LIDOCAINE
     Indication: Neuralgia
     Dosage: UNK
     Route: 061
  4. LIDOCAINE [Suspect]
     Active Substance: LIDOCAINE
     Indication: Post herpetic neuralgia
  5. CITALOPRAM [Suspect]
     Active Substance: CITALOPRAM HYDROBROMIDE
     Indication: Neuralgia
     Dosage: UNK
     Route: 065
  6. CITALOPRAM [Suspect]
     Active Substance: CITALOPRAM HYDROBROMIDE
     Indication: Post herpetic neuralgia
  7. SERTRALINE [Suspect]
     Active Substance: SERTRALINE HYDROCHLORIDE
     Indication: Neuralgia
     Dosage: UNK
     Route: 065
  8. SERTRALINE [Suspect]
     Active Substance: SERTRALINE HYDROCHLORIDE
     Indication: Post herpetic neuralgia
  9. LAMOTRIGINE [Suspect]
     Active Substance: LAMOTRIGINE
     Indication: Neuralgia
     Dosage: UNK
     Route: 065
  10. LAMOTRIGINE [Suspect]
     Active Substance: LAMOTRIGINE
     Indication: Post herpetic neuralgia
  11. LEVETIRACETAM [Suspect]
     Active Substance: LEVETIRACETAM
     Indication: Neuralgia
     Dosage: UNK
     Route: 065
  12. LEVETIRACETAM [Suspect]
     Active Substance: LEVETIRACETAM
     Indication: Post herpetic neuralgia
  13. TRAMADOL [Suspect]
     Active Substance: TRAMADOL
     Indication: Neuralgia
     Dosage: UNK
     Route: 065
  14. TRAMADOL [Suspect]
     Active Substance: TRAMADOL
     Indication: Post herpetic neuralgia
  15. METHADONE [Suspect]
     Active Substance: METHADONE HYDROCHLORIDE
     Indication: Neuralgia
     Dosage: UNK
     Route: 065
  16. METHADONE [Suspect]
     Active Substance: METHADONE HYDROCHLORIDE
     Indication: Post herpetic neuralgia
  17. TEMAZEPAM [Suspect]
     Active Substance: TEMAZEPAM
     Indication: Neuralgia
     Dosage: UNK
     Route: 065
  18. TEMAZEPAM [Suspect]
     Active Substance: TEMAZEPAM
     Indication: Post herpetic neuralgia
  19. DULOXETINE [Suspect]
     Active Substance: DULOXETINE
     Indication: Neuralgia
     Dosage: UNK
     Route: 065
  20. DULOXETINE [Suspect]
     Active Substance: DULOXETINE
     Indication: Post herpetic neuralgia
  21. DESIPRAMINE [Suspect]
     Active Substance: DESIPRAMINE
     Indication: Neuralgia
     Dosage: UNK
     Route: 065
  22. DESIPRAMINE [Suspect]
     Active Substance: DESIPRAMINE
     Indication: Post herpetic neuralgia
  23. ACETAMINOPHEN\PROPOXYPHENE NAPSYLATE [Suspect]
     Active Substance: ACETAMINOPHEN\PROPOXYPHENE NAPSYLATE
     Indication: Neuralgia
     Dosage: UNK
     Route: 065
  24. ACETAMINOPHEN\PROPOXYPHENE NAPSYLATE [Suspect]
     Active Substance: ACETAMINOPHEN\PROPOXYPHENE NAPSYLATE
     Indication: Post herpetic neuralgia
  25. TAPENTADOL [Suspect]
     Active Substance: TAPENTADOL
     Indication: Neuralgia
     Dosage: UNK
     Route: 065
  26. TAPENTADOL [Suspect]
     Active Substance: TAPENTADOL
     Indication: Post herpetic neuralgia
  27. GABAPENTIN [Concomitant]
     Active Substance: GABAPENTIN
     Indication: Neuralgia
     Dosage: RECEIVED HIGH DOSES
     Route: 065
  28. GABAPENTIN [Concomitant]
     Active Substance: GABAPENTIN
     Indication: Post herpetic neuralgia

REACTIONS (1)
  - Drug ineffective [Unknown]
